FAERS Safety Report 17122220 (Version 5)
Quarter: 2021Q1

REPORT INFORMATION
  Report Type: Spontaneous
  Country: US (occurrence: US)
  Receive Date: 20191206
  Receipt Date: 20210325
  Transmission Date: 20210419
  Serious: No
  Sender: FDA-Public Use
  Company Number: US-PFIZER INC-2019431231

PATIENT
  Age: 70 Year
  Sex: Female

DRUGS (1)
  1. IBRANCE [Suspect]
     Active Substance: PALBOCICLIB
     Indication: BREAST CANCER FEMALE
     Dosage: 125 MG, CYCLIC (TAKE ONE CAP DAILY X 3 WEEKS OF A 6 WEEK CYCLE)

REACTIONS (3)
  - Headache [Unknown]
  - Insomnia [Unknown]
  - Feeling abnormal [Unknown]
